FAERS Safety Report 10701451 (Version 1)
Quarter: 2014Q4

REPORT INFORMATION
  Report Type: Spontaneous
  Country: US (occurrence: None)
  Receive Date: 20141223
  Receipt Date: 20141223
  Transmission Date: 20150529
  Serious: No
  Sender: FDA-Public Use
  Company Number: 1000070517

PATIENT
  Age: 71 Year
  Sex: Male

DRUGS (3)
  1. NAPROSYN (NAPROXEN) (NAPROXEN) [Concomitant]
  2. LINZESS [Suspect]
     Active Substance: LINACLOTIDE
     Indication: CONSTIPATION
     Dosage: 145 MCG (145 MCG, 1 IN 1 D), ORAL
     Route: 048
     Dates: start: 2013
  3. LACTULOSE (LACTULOSE) [Concomitant]
     Active Substance: LACTULOSE

REACTIONS (1)
  - Drug ineffective [None]

NARRATIVE: CASE EVENT DATE: 2013
